FAERS Safety Report 6732334-X (Version None)
Quarter: 2010Q2

REPORT INFORMATION
  Report Type: 
  Country: None (occurrence: None)
  Receive Date: 20100519
  Receipt Date: 20100507
  Transmission Date: 20101027
  Serious: Yes (Other)
  Sender: FDA-Public Use
  Company Number: US-JNJFOC-20100503970

PATIENT
  Sex: Female

DRUGS (5)
  1. TYLENOL [Suspect]
  2. TYLENOL [Suspect]
     Indication: PAIN
  3. CELEBREX [Suspect]
     Indication: DRUG USE FOR UNKNOWN INDICATION
  4. MORPHINE SULFATE [Suspect]
     Indication: FIBROMYALGIA
  5. NARCAN [Suspect]
     Indication: DRUG USE FOR UNKNOWN INDICATION
     Route: 048

REACTIONS (3)
  - MEMORY IMPAIRMENT [None]
  - OVERDOSE [None]
  - PARAESTHESIA [None]
